FAERS Safety Report 8090740-8 (Version None)
Quarter: 2012Q1

REPORT INFORMATION
  Report Type: 
  Country: None (occurrence: None)
  Receive Date: 20120125
  Receipt Date: 20120120
  Transmission Date: 20120608
  Serious: Yes (Other)
  Sender: FDA-Public Use
  Company Number: 2011SP056481

PATIENT
  Age: 49 Year
  Sex: Female
  Weight: 64 kg

DRUGS (3)
  1. VECURONIUM BROMIDE [Suspect]
     Indication: NEUROMUSCULAR BLOCKING THERAPY
     Dosage: ;IV
     Route: 042
     Dates: start: 20111016, end: 20111016
  2. PROPOFOL [Suspect]
     Indication: ANAESTHESIA PROCEDURE
     Dosage: 200 MG;;IV
     Route: 042
     Dates: start: 20111016, end: 20111016
  3. SEVOFLURANE [Concomitant]

REACTIONS (1)
  - ANAPHYLACTOID REACTION [None]
